FAERS Safety Report 9963013 (Version 1)
Quarter: 2014Q1

REPORT INFORMATION
  Report Type: Spontaneous
  Country: US (occurrence: US)
  Receive Date: 20140305
  Receipt Date: 20140305
  Transmission Date: 20141002
  Serious: Yes (Other)
  Sender: FDA-Public Use
  Company Number: US-ASTRAZENECA-2014SE13156

PATIENT
  Sex: Male

DRUGS (7)
  1. SEROQUEL [Suspect]
     Route: 048
  2. SEROQUEL [Suspect]
     Dosage: TITRATED OFF OF 100 MG
     Route: 048
  3. LATUDA [Suspect]
     Route: 065
  4. LATUDA [Suspect]
     Route: 065
  5. LITHIUM [Concomitant]
  6. DEPAKOTE [Concomitant]
  7. CLONOPIN [Concomitant]

REACTIONS (1)
  - Tremor [Recovered/Resolved]
